FAERS Safety Report 6445649-X (Version None)
Quarter: 2009Q4

REPORT INFORMATION
  Report Type: 
  Country: None (occurrence: None)
  Receive Date: 20091118
  Receipt Date: 20091118
  Transmission Date: 20100525
  Serious: No
  Sender: FDA-Public Use
  Company Number: None

PATIENT
  Sex: Male
  Weight: 76.4 kg

DRUGS (1)
  1. NATURAL WHITE SENSITIVE EXTREME WHITENING TOOTHPA LORNAMEAD BRANDS INC [Suspect]
     Indication: SENSITIVITY OF TEETH
     Dosage: AS DIRECTED TWICE DAILY TOPICALLY - ORAL
     Route: 048
     Dates: start: 20090501, end: 20091001

REACTIONS (4)
  - AGEUSIA [None]
  - BURNING MOUTH SYNDROME [None]
  - LIP SWELLING [None]
  - PAIN IN JAW [None]
